FAERS Safety Report 6409013-1 (Version None)
Quarter: 2009Q4

REPORT INFORMATION
  Report Type: 
  Country: None (occurrence: None)
  Receive Date: 20091021
  Receipt Date: 20091016
  Transmission Date: 20100525
  Serious: Yes (Life-Threatening, Other)
  Sender: FDA-Public Use
  Company Number: US-WYE-H11634109

PATIENT
  Age: 53 Year
  Sex: Female

DRUGS (8)
  1. PRISTIQ [Suspect]
     Indication: DEPRESSION
     Route: 048
     Dates: start: 20090801, end: 20090101
  2. PRISTIQ [Suspect]
     Route: 048
     Dates: start: 20090101, end: 20090101
  3. PRISTIQ [Suspect]
     Route: 048
     Dates: start: 20090101
  4. LAMICTAL [Concomitant]
     Dosage: UNKNOWN DOSE DAILY
     Route: 048
  5. PROZAC [Concomitant]
     Dosage: UNKNOWN DOSE DAILY
     Route: 048
  6. LEVBID [Concomitant]
     Dosage: UNKNOWN DOSE DAILY
     Route: 048
  7. BUSPAR [Concomitant]
     Dosage: UNKNOWN DOSE DAILY
     Route: 048
  8. AMBIEN [Concomitant]
     Dosage: UNKNOWN DOSE NIGHTLY
     Route: 048

REACTIONS (4)
  - BLINDNESS [None]
  - DEAFNESS [None]
  - HYPERTENSION [None]
  - TRANSIENT ISCHAEMIC ATTACK [None]
